FAERS Safety Report 8566579-3 (Version None)
Quarter: 2012Q3

REPORT INFORMATION
  Report Type: 
  Country: None (occurrence: None)
  Receive Date: 20120803
  Receipt Date: 20111026
  Transmission Date: 20120928
  Serious: No
  Sender: FDA-Public Use
  Company Number: US-ABBOTT-11P-163-0869387-00

PATIENT
  Age: 76 Year
  Sex: Female
  Weight: 60.382 kg

DRUGS (4)
  1. NIASPAN [Suspect]
     Indication: BLOOD CHOLESTEROL
     Dates: start: 20110901
  2. COLCRYS [Suspect]
     Indication: BLOOD URIC ACID INCREASED
     Dates: start: 20110901
  3. CRESTOR [Concomitant]
     Indication: BLOOD CHOLESTEROL INCREASED
  4. ALLOPURINOL [Suspect]
     Indication: BLOOD URIC ACID INCREASED
     Dates: start: 20110901

REACTIONS (3)
  - ASTHENIA [None]
  - FEELING ABNORMAL [None]
  - DIARRHOEA [None]
